FAERS Safety Report 17944840 (Version 2)
Quarter: 2020Q4

REPORT INFORMATION
  Report Type: Spontaneous
  Country: US (occurrence: US)
  Receive Date: 20200625
  Receipt Date: 20201106
  Transmission Date: 20210113
  Serious: Yes (Other)
  Sender: FDA-Public Use
  Company Number: US-GILEAD-2020-0475973

PATIENT
  Age: 66 Year
  Sex: Male

DRUGS (1)
  1. TRUVADA [Suspect]
     Active Substance: EMTRICITABINE\TENOFOVIR DISOPROXIL FUMARATE
     Indication: PROPHYLAXIS AGAINST HIV INFECTION
     Dosage: UNK
     Route: 048
     Dates: start: 201511, end: 201705

REACTIONS (4)
  - Chronic kidney disease [Not Recovered/Not Resolved]
  - Bone loss [Recovered/Resolved]
  - Medical device removal [Recovered/Resolved]
  - Fanconi syndrome acquired [Not Recovered/Not Resolved]

NARRATIVE: CASE EVENT DATE: 2017
